FAERS Safety Report 24892712 (Version 4)
Quarter: 2025Q4

REPORT INFORMATION
  Report Type: Report from Study
  Country: US (occurrence: US)
  Receive Date: 20250128
  Receipt Date: 20251020
  Transmission Date: 20260118
  Serious: Yes (Other)
  Sender: ALEXION PHARMACEUTICALS
  Company Number: US-AstraZeneca-CH-00793285A

PATIENT
  Age: 64 Year
  Sex: Female
  Weight: 51.2 kg

DRUGS (3)
  1. ALBUTEROL\BUDESONIDE [Suspect]
     Active Substance: ALBUTEROL\BUDESONIDE
     Indication: Chronic obstructive pulmonary disease
     Dosage: 80-90 MCG, 2 PUFFS, 6 HR, PRN
  2. ALBUTEROL\BUDESONIDE [Suspect]
     Active Substance: ALBUTEROL\BUDESONIDE
     Indication: Dyspnoea
  3. BREZTRI [Concomitant]
     Active Substance: BUDESONIDE\FORMOTEROL\GLYCOPYRROLATE
     Dosage: UNK
     Route: 065

REACTIONS (5)
  - Pneumonia [Recovered/Resolved]
  - SARS-CoV-2 test negative [Recovered/Resolved]
  - Respiratory syncytial virus test negative [Recovered/Resolved]
  - Chronic obstructive pulmonary disease [Unknown]
  - Emphysema [Unknown]

NARRATIVE: CASE EVENT DATE: 20250207
